FAERS Safety Report 13598488 (Version 1)
Quarter: 2017Q2

REPORT INFORMATION
  Report Type: Spontaneous
  Country: US (occurrence: US)
  Receive Date: 20170531
  Receipt Date: 20170531
  Transmission Date: 20170830
  Serious: Yes (Other)
  Sender: FDA-Public Use
  Company Number: None

PATIENT
  Age: 70 Year
  Sex: Female
  Weight: 58.5 kg

DRUGS (6)
  1. LISINOPRIL. [Concomitant]
     Active Substance: LISINOPRIL
  2. BERBERINE [Concomitant]
     Active Substance: BERBERINE
  3. VITAMIN B12 [Concomitant]
     Active Substance: CYANOCOBALAMIN
  4. WALGREENS MAXIMUM STRENGTH [Suspect]
     Active Substance: BENZOCAINE
     Indication: NONINFECTIVE GINGIVITIS
     Dosage: ?          QUANTITY:1 4 X DAILY;?
     Route: 061
     Dates: start: 20170528, end: 20170529
  5. PROBIOTIC [Concomitant]
     Active Substance: PROBIOTICS NOS
  6. VITAIMIN D [Concomitant]

REACTIONS (7)
  - Dyspnoea [None]
  - Syncope [None]
  - Malaise [None]
  - Alcohol use [None]
  - Fall [None]
  - Hangover [None]
  - Fatigue [None]

NARRATIVE: CASE EVENT DATE: 20170529
